FAERS Safety Report 24124946 (Version 1)
Quarter: 2024Q3

REPORT INFORMATION
  Report Type: Report from Study
  Country: US (occurrence: US)
  Receive Date: 20240723
  Receipt Date: 20240723
  Transmission Date: 20241016
  Serious: No
  Sender: CELLTRION
  Company Number: US-CELLTRION INC.-2024US014419

PATIENT

DRUGS (3)
  1. BEVACIZUMAB [Suspect]
     Active Substance: BEVACIZUMAB
     Indication: Vulval cancer
     Dosage: 15 MG/M2, EVERY 3 WEEKS (ONE CYCLE)
  2. CARBOPLATIN [Suspect]
     Active Substance: CARBOPLATIN
     Indication: Vulval cancer
     Dosage: 6 CYCLES
  3. PACLITAXEL [Suspect]
     Active Substance: PACLITAXEL
     Indication: Vulval cancer
     Dosage: 175 MG/M2

REACTIONS (3)
  - Hypertension [Unknown]
  - Therapy partial responder [Unknown]
  - Intentional product use issue [Unknown]
